FAERS Safety Report 18910594 (Version 3)
Quarter: 2021Q1

REPORT INFORMATION
  Report Type: Other
  Country: US (occurrence: US)
  Receive Date: 20210218
  Receipt Date: 20210322
  Transmission Date: 20210420
  Serious: Yes (Hospitalization, Other)
  Sender: FDA-Public Use
  Company Number: US-INTERCEPT-PM2021000344

PATIENT
  Age: 66 Year
  Sex: Female

DRUGS (10)
  1. LACTULOSE. [Concomitant]
     Active Substance: LACTULOSE
     Dosage: 20 GRAM
  2. LASIX [Concomitant]
     Active Substance: FUROSEMIDE
     Indication: ASCITES
     Dosage: 40 MILLIGRAM, QD
     Route: 048
  3. URSODIOL. [Concomitant]
     Active Substance: URSODIOL
     Indication: CHOLANGITIS SCLEROSING
     Dosage: 900 MILLIGRAM, BID
  4. ATORVASTATIN [Concomitant]
     Active Substance: ATORVASTATIN
     Indication: BLOOD CHOLESTEROL INCREASED
     Dosage: 20 MILLIGRAM, QD
  5. OMEPRAZOLE. [Concomitant]
     Active Substance: OMEPRAZOLE
     Indication: GASTROOESOPHAGEAL REFLUX DISEASE
     Dosage: 40 MILLIGRAM, QD
  6. OCALIVA [Suspect]
     Active Substance: OBETICHOLIC ACID
     Indication: PRIMARY BILIARY CHOLANGITIS
     Dosage: 5 MILLIGRAM, QD
     Route: 048
     Dates: start: 20201111
  7. RIFAXIMIN. [Concomitant]
     Active Substance: RIFAXIMIN
     Indication: ENCEPHALOPATHY
     Dosage: 550 MILLIGRAM, BID
  8. CITALOPRAM [Concomitant]
     Active Substance: CITALOPRAM HYDROBROMIDE
     Indication: DEPRESSION
     Dosage: 20 MILLIGRAM, QD
  9. SPIRONOLACTONE. [Concomitant]
     Active Substance: SPIRONOLACTONE
     Indication: ASCITES
     Dosage: 50 MILLIGRAM, QD
  10. LACTULOSE. [Concomitant]
     Active Substance: LACTULOSE
     Indication: ENCEPHALOPATHY
     Dosage: 45 MILLILITER, QID

REACTIONS (23)
  - Ascites [Recovering/Resolving]
  - Paracentesis [Unknown]
  - Herpes zoster [Recovering/Resolving]
  - Product prescribing error [Not Recovered/Not Resolved]
  - Abdominal distension [Recovering/Resolving]
  - Fall [Recovered/Resolved]
  - Hypotension [Recovering/Resolving]
  - Ammonia increased [Recovered/Resolved]
  - Bacteriuria [Recovering/Resolving]
  - Product dose omission issue [Recovered/Resolved]
  - Hepatic cirrhosis [Recovering/Resolving]
  - Portal hypertension [Recovering/Resolving]
  - Illness [Recovering/Resolving]
  - Asthenia [Not Recovered/Not Resolved]
  - Haemoglobin abnormal [Recovering/Resolving]
  - Dyspnoea [Recovering/Resolving]
  - Diverticulum intestinal [Recovering/Resolving]
  - Oedema peripheral [Recovering/Resolving]
  - Rash [Recovering/Resolving]
  - Asterixis [Recovered/Resolved]
  - Rehabilitation therapy [Recovered/Resolved]
  - Therapy interrupted [Recovered/Resolved]
  - Fluid retention [Recovering/Resolving]

NARRATIVE: CASE EVENT DATE: 202011
